FAERS Safety Report 24681714 (Version 1)
Quarter: 2024Q4

REPORT INFORMATION
  Report Type: Spontaneous
  Country: CN (occurrence: CN)
  Receive Date: 20241130
  Receipt Date: 20241130
  Transmission Date: 20250114
  Serious: Yes (Hospitalization)
  Sender: AMGEN
  Company Number: CN-AMGEN-CHNSP2024234057

PATIENT
  Age: 72 Year
  Sex: Female
  Weight: 52 kg

DRUGS (5)
  1. REPATHA [Suspect]
     Active Substance: EVOLOCUMAB
     Indication: Hyperlipidaemia
     Dosage: 140 MILLIGRAM, Q2WK
     Route: 058
     Dates: start: 20241113, end: 20241114
  2. CEFIXIME [Concomitant]
     Active Substance: CEFIXIME
  3. SULFADIAZINE [Concomitant]
     Active Substance: SULFADIAZINE
  4. STREPTOMYCIN [Concomitant]
     Active Substance: STREPTOMYCIN SULFATE
  5. PENICILLIN [Concomitant]
     Active Substance: PENICILLIN

REACTIONS (4)
  - Pyrexia [Recovered/Resolved]
  - Myalgia [Recovered/Resolved]
  - Temperature intolerance [Recovered/Resolved]
  - Hypersensitivity [Recovered/Resolved]

NARRATIVE: CASE EVENT DATE: 20241114
